FAERS Safety Report 18033323 (Version 1)
Quarter: 2020Q3

REPORT INFORMATION
  Report Type: Spontaneous
  Country: FR (occurrence: FR)
  Receive Date: 20200716
  Receipt Date: 20200716
  Transmission Date: 20201103
  Serious: Yes (Death)
  Sender: FDA-Public Use
  Company Number: FR-009507513-2007FRA005331

PATIENT
  Age: 64 Year
  Sex: Male

DRUGS (11)
  1. MIDAZOLAM. [Concomitant]
     Active Substance: MIDAZOLAM
     Indication: SEDATION
     Dosage: UNK
     Route: 041
     Dates: start: 20200429
  2. SINGULAIR [Suspect]
     Active Substance: MONTELUKAST SODIUM
     Indication: ASTHMA
     Dosage: 10 MG/J
     Route: 048
     Dates: end: 20200504
  3. CORDARONE [Concomitant]
     Active Substance: AMIODARONE HYDROCHLORIDE
     Indication: ATRIAL FIBRILLATION
     Dosage: 400 MG/J
     Route: 041
     Dates: start: 202003
  4. HEPARIN SODIUM. [Interacting]
     Active Substance: HEPARIN SODIUM
     Indication: ANTICOAGULANT THERAPY
     Dosage: UNKNOWN
     Route: 041
     Dates: start: 202003, end: 20200506
  5. CEFEPIME [Concomitant]
     Active Substance: CEFEPIME HYDROCHLORIDE
     Indication: INFECTION
     Dosage: 4 GRAM, QD
     Route: 042
     Dates: start: 20200422, end: 20200428
  6. CORTANCYL [Concomitant]
     Active Substance: PREDNISONE
     Dosage: 5 MG/J
     Route: 048
  7. NOREPINEPHRINE. [Concomitant]
     Active Substance: NOREPINEPHRINE
     Dosage: UNK
     Route: 042
     Dates: start: 20200430, end: 20200504
  8. ERYTHROMYCIN. [Concomitant]
     Active Substance: ERYTHROMYCIN
     Indication: ANTIBIOTIC THERAPY
     Dosage: UNK
     Route: 042
     Dates: start: 20200503, end: 20200504
  9. ESOMEPRAZOLE. [Concomitant]
     Active Substance: ESOMEPRAZOLE MAGNESIUM
     Dosage: 40 MG/J
     Route: 048
     Dates: start: 20200430, end: 20200504
  10. FENTANYL. [Concomitant]
     Active Substance: FENTANYL
     Indication: SEDATION
     Dosage: 7150 ?G/J
     Route: 041
     Dates: start: 20200428
  11. NIMBEX [Concomitant]
     Active Substance: CISATRACURIUM BESYLATE
     Indication: NEUROMUSCULAR BLOCKING THERAPY
     Dosage: UNK
     Route: 041
     Dates: start: 20200429

REACTIONS (1)
  - Cerebral haemorrhage [Fatal]

NARRATIVE: CASE EVENT DATE: 20200505
